FAERS Safety Report 23355900 (Version 6)
Quarter: 2024Q2

REPORT INFORMATION
  Report Type: Spontaneous
  Country: CA (occurrence: CA)
  Receive Date: 20240102
  Receipt Date: 20240628
  Transmission Date: 20240716
  Serious: Yes (Life-Threatening, Other)
  Sender: FDA-Public Use
  Company Number: CA-CELLTRION INC.-2023CA019640

PATIENT

DRUGS (15)
  1. INFLECTRA [Suspect]
     Active Substance: INFLIXIMAB-DYYB
     Indication: Crohn^s disease
     Dosage: 400 MG, Q 0,2 ,6 THEN EVERY 8 WEEKS
     Route: 042
     Dates: start: 20230919
  2. INFLECTRA [Suspect]
     Active Substance: INFLIXIMAB-DYYB
     Dosage: 400 MG, AFTER 2 WEEKS
     Route: 042
     Dates: start: 20231003
  3. INFLECTRA [Suspect]
     Active Substance: INFLIXIMAB-DYYB
     Dosage: 400 MG, 4 WEEKS AND 2 DAYS
     Route: 042
     Dates: start: 20231102
  4. INFLECTRA [Suspect]
     Active Substance: INFLIXIMAB-DYYB
     Dosage: 400 MG, AFTER 7 WEEKS AND 1 DAY (Q 0,2 ,6 THEN EVERY 8 WEEKS)
     Route: 042
     Dates: start: 20231222
  5. INFLECTRA [Suspect]
     Active Substance: INFLIXIMAB-DYYB
     Dosage: 400 MG, AFTER 8 WEEKS (Q 0,2 ,6 THEN EVERY 8 WEEKS)
     Route: 042
     Dates: start: 20240216
  6. INFLECTRA [Suspect]
     Active Substance: INFLIXIMAB-DYYB
     Dosage: 800 MG, RECEIVED IT AFTER 3 WEEKS AND 6 DAYS (EVERY 8 WEEKS)
     Route: 042
     Dates: start: 20240315
  7. INFLECTRA [Suspect]
     Active Substance: INFLIXIMAB-DYYB
     Dosage: 800 MG, AFTER 7 WEEKS AND 6 DAYS (EVERY 8 WEEKS)
     Route: 042
     Dates: start: 20240509
  8. INFLUENZA VIRUS VACCINE [Concomitant]
     Active Substance: INFLUENZA VIRUS VACCINE
     Indication: Influenza immunisation
     Dosage: DOSE NUMBER UNKNOWN, SINGLE
     Dates: start: 2023, end: 2023
  9. ACETAMINOPHEN [Concomitant]
     Active Substance: ACETAMINOPHEN
     Indication: Premedication
     Dosage: UNK
     Dates: start: 20231003, end: 20231003
  10. ACETAMINOPHEN [Concomitant]
     Active Substance: ACETAMINOPHEN
     Dosage: UNK
     Dates: start: 20240315, end: 20240315
  11. ACETAMINOPHEN [Concomitant]
     Active Substance: ACETAMINOPHEN
     Dosage: UNK
     Dates: start: 20240509, end: 20240509
  12. DIPHENHYDRAMINE [Concomitant]
     Active Substance: DIPHENHYDRAMINE
     Indication: Premedication
     Dosage: UNK
     Dates: start: 20231003, end: 20231003
  13. DIPHENHYDRAMINE [Concomitant]
     Active Substance: DIPHENHYDRAMINE
     Dosage: UNK
     Dates: start: 20240315, end: 20240315
  14. DIPHENHYDRAMINE [Concomitant]
     Active Substance: DIPHENHYDRAMINE
     Dosage: UNK
     Dates: start: 20240509, end: 20240509
  15. HYDROCORTISONE [Concomitant]
     Active Substance: HYDROCORTISONE\HYDROCORTISONE ACETATE
     Indication: Premedication
     Dosage: UNK
     Dates: start: 20240509, end: 20240509

REACTIONS (31)
  - Heart rate increased [Recovered/Resolved]
  - Hyperhidrosis [Recovered/Resolved]
  - Flushing [Recovered/Resolved]
  - Paraesthesia oral [Recovered/Resolved]
  - Throat irritation [Recovered/Resolved]
  - Vomiting [Recovered/Resolved]
  - Condition aggravated [Not Recovered/Not Resolved]
  - Uveitis [Recovered/Resolved]
  - Throat tightness [Recovering/Resolving]
  - Dyspnoea [Recovering/Resolving]
  - Flushing [Recovering/Resolving]
  - Chest discomfort [Recovering/Resolving]
  - Condition aggravated [Recovering/Resolving]
  - Blood pressure fluctuation [Unknown]
  - Pruritus [Recovered/Resolved]
  - Erythema nodosum [Recovered/Resolved]
  - Arthralgia [Not Recovered/Not Resolved]
  - Aphthous ulcer [Recovered/Resolved]
  - Neck pain [Unknown]
  - Influenza like illness [Unknown]
  - Abdominal discomfort [Unknown]
  - Sinus disorder [Unknown]
  - Infusion site extravasation [Unknown]
  - Poor venous access [Unknown]
  - Contusion [Not Recovered/Not Resolved]
  - Feeding disorder [Not Recovered/Not Resolved]
  - Nausea [Recovered/Resolved]
  - Infusion site extravasation [Unknown]
  - Infusion site swelling [Unknown]
  - Respiratory rate increased [Recovered/Resolved]
  - Off label use [Unknown]

NARRATIVE: CASE EVENT DATE: 20230919
